FAERS Safety Report 7809464-4 (Version None)
Quarter: 2011Q4

REPORT INFORMATION
  Report Type: 
  Country: None (occurrence: None)
  Receive Date: 20111012
  Receipt Date: 20110928
  Transmission Date: 20120403
  Serious: Yes (Hospitalization)
  Sender: FDA-Public Use
  Company Number: PHHY2011PL87059

PATIENT
  Sex: Male
  Weight: 59 kg

DRUGS (3)
  1. MYFORTIC [Suspect]
     Indication: IMMUNOSUPPRESSION
     Dosage: 720 MG/24 HOURS
     Route: 048
     Dates: start: 20110421
  2. PREDNISONE [Concomitant]
     Indication: IMMUNOSUPPRESSION
     Dosage: 12.5 MG, UNK
     Dates: start: 20110421
  3. CYCLOSPORINE [Concomitant]
     Indication: IMMUNOSUPPRESSION
     Dosage: 250 MG, UNK
     Dates: start: 20110421, end: 20110622

REACTIONS (12)
  - HYPERTENSION [None]
  - HYPERCALCAEMIA [None]
  - BLOOD CREATINE INCREASED [None]
  - C-REACTIVE PROTEIN INCREASED [None]
  - URINARY TRACT INFECTION [None]
  - HYPOPHOSPHATAEMIA [None]
  - PYREXIA [None]
  - LYMPHOCELE [None]
  - OLIGURIA [None]
  - PSEUDOMONAS INFECTION [None]
  - CYTOMEGALOVIRUS INFECTION [None]
  - HYPERPARATHYROIDISM [None]
